FAERS Safety Report 10025674 (Version 1)
Quarter: 2014Q1

REPORT INFORMATION
  Report Type: Spontaneous
  Country: FR (occurrence: None)
  Receive Date: 20140314
  Receipt Date: 20140314
  Transmission Date: 20141002
  Serious: Yes (Hospitalization)
  Sender: FDA-Public Use
  Company Number: FK201400777

PATIENT
  Age: 51 Year
  Sex: Male

DRUGS (9)
  1. IRINOTECAN [Suspect]
     Indication: COLON CANCER METASTATIC
     Route: 042
     Dates: start: 20131122, end: 20131210
  2. AVASTATIN [Suspect]
     Indication: COLON CANCER METASTATIC
     Route: 042
     Dates: start: 20131122, end: 20131210
  3. OXALIPLATIN [Suspect]
     Indication: COLON CANCER METASTATIC
     Route: 042
     Dates: start: 20131122, end: 20131210
  4. FLUOROURACILE [Suspect]
     Indication: COLON CANCER METASTATIC
     Dates: start: 20131122, end: 20131210
  5. ELVORINE [Suspect]
     Indication: COLON CANCER METASTATIC
     Route: 042
     Dates: start: 20131122, end: 20131210
  6. LASILIX (FUROSEMIDE) [Concomitant]
  7. OXYCONTIN LP 20 (OXYCODONE HYDROCHLORIDE) [Concomitant]
  8. OXYNORM (OXYCODONE HYDROCHLORIDE) [Concomitant]
  9. PROZAC (FLUOXETINE HYDROCHLORIDE) [Concomitant]

REACTIONS (4)
  - Coronary artery disease [None]
  - Chest pain [None]
  - Myocardial ischaemia [None]
  - Coronary artery stenosis [None]
